FAERS Safety Report 8366421-X (Version None)
Quarter: 2012Q2

REPORT INFORMATION
  Report Type: 
  Country: None (occurrence: None)
  Receive Date: 20120517
  Receipt Date: 20120514
  Transmission Date: 20120825
  Serious: Yes (Other)
  Sender: FDA-Public Use
  Company Number: AT-PFIZER INC-2012116399

PATIENT
  Age: 35 Year
  Sex: Female

DRUGS (16)
  1. LYRICA [Suspect]
     Dosage: 75 MG, 1X/DAY
     Dates: start: 20120307, end: 20120307
  2. LYRICA [Suspect]
     Dosage: 375 MG, 1X/DAY
     Dates: start: 20120313, end: 20120318
  3. ALPRAZOLAM [Concomitant]
     Dosage: 0.75 MG, DAILY
     Dates: start: 20120309, end: 20120309
  4. LYRICA [Suspect]
     Dosage: 200 MG, 1X/DAY
     Dates: start: 20120308, end: 20120308
  5. ALPRAZOLAM [Concomitant]
     Dosage: 1 MG, DAILY
     Dates: start: 20120307, end: 20120308
  6. ALPRAZOLAM [Concomitant]
     Dosage: 0.25 MG, DAILY
     Dates: start: 20120312, end: 20120313
  7. TRAZODONE HCL [Concomitant]
     Dosage: 150 MG, DAILY
     Dates: start: 20120217, end: 20120221
  8. ALPRAZOLAM [Concomitant]
     Dosage: 0.50 MG, DAILY
     Dates: start: 20120310, end: 20120311
  9. LYRICA [Suspect]
     Dosage: 300 MG, 1X/DAY
     Dates: start: 20120319, end: 20120322
  10. DOMINAL FORTE [Suspect]
     Dosage: 80 MG, DAILY
     Dates: start: 20120221
  11. CARBAMAZEPINE [Concomitant]
     Dosage: 600 MG, DAILY
     Dates: start: 20120218, end: 20120308
  12. ALPRAZOLAM [Concomitant]
     Dosage: 1.25 MG, DAILY
     Dates: start: 20120216, end: 20120306
  13. LYRICA [Suspect]
     Dosage: 50 MG, 1X/DAY
     Dates: start: 20120305, end: 20120306
  14. LYRICA [Suspect]
     Dosage: 300 MG, 1X/DAY
     Dates: start: 20120309, end: 20120312
  15. CARBAMAZEPINE [Concomitant]
     Dosage: 900 MG, DAILY
     Dates: start: 20120309
  16. TRAZODONE HCL [Concomitant]
     Dosage: 525 MG, DAILY
     Dates: start: 20120222, end: 20120423

REACTIONS (1)
  - GALACTORRHOEA [None]
